FAERS Safety Report 8336497 (Version 2)
Quarter: 2012Q4

REPORT INFORMATION
  Report Type: 
  Country: FR (occurrence: FR)
  Receive Date: 20120113
  Receipt Date: 20120921
  Transmission Date: 20130627
  Serious: Yes (Hospitalization)
  Sender: FDA-Public Use
  Company Number: FR-PFIZER INC-2012004065

PATIENT
  Age: 43 Year
  Sex: Male

DRUGS (4)
  1. TAZOCILLINE [Suspect]
     Dosage: 4 g, 3x/day
     Route: 042
     Dates: start: 20110406, end: 20110504
  2. VANCOMYCINE [Suspect]
     Dosage: 1 g, 2x/day
     Dates: start: 20110412, end: 20110504
  3. FLAGYL ^AVENTIS^ [Concomitant]
     Dosage: 500 mg, 3x/day
     Route: 048
     Dates: start: 20110411, end: 20110421
  4. TIORFAN [Concomitant]
     Dosage: 100 mg, 3x/day
     Route: 048
     Dates: start: 20110414

REACTIONS (2)
  - Drug reaction with eosinophilia and systemic symptoms [Recovered/Resolved]
  - Skin test negative [Unknown]
